FAERS Safety Report 14275518 (Version 1)
Quarter: 2017Q4

REPORT INFORMATION
  Report Type: Spontaneous
  Country: DE (occurrence: DE)
  Receive Date: 20171211
  Receipt Date: 20171211
  Transmission Date: 20180321
  Serious: Yes (Other)
  Sender: FDA-Public Use
  Company Number: DE-OTSUKA-J201502197

PATIENT
  Age: 14 Year
  Sex: Female

DRUGS (1)
  1. ABILIFY [Suspect]
     Active Substance: ARIPIPRAZOLE
     Indication: TIC
     Dosage: 4 MG, QD
     Route: 048

REACTIONS (3)
  - Panic reaction [Unknown]
  - Pain [Unknown]
  - Off label use [Unknown]
